FAERS Safety Report 25540580 (Version 1)
Quarter: 2025Q3

REPORT INFORMATION
  Report Type: Spontaneous
  Country: US (occurrence: None)
  Receive Date: 20250710
  Receipt Date: 20250710
  Transmission Date: 20251020
  Serious: Yes (Death, Life-Threatening, Hospitalization, Disabling, Other)
  Sender: FDA-CTU
  Company Number: None

PATIENT
  Age: 34 Year
  Sex: Male
  Weight: 81 kg

DRUGS (2)
  1. FINASTERIDE\MINOXIDIL [Suspect]
     Active Substance: FINASTERIDE\MINOXIDIL
     Indication: Alopecia
     Dosage: FREQUENCY : AT BEDTIME;?
     Route: 061
     Dates: start: 20230130, end: 20240908
  2. FINASTERIDE\MINOXIDIL [Suspect]
     Active Substance: FINASTERIDE\MINOXIDIL
     Indication: Prophylaxis

REACTIONS (12)
  - Drug withdrawal syndrome [None]
  - Cognitive disorder [None]
  - Emotional disorder [None]
  - Memory impairment [None]
  - Disturbance in attention [None]
  - Depression [None]
  - Anxiety [None]
  - Stress [None]
  - Insomnia [None]
  - Impaired quality of life [None]
  - Impaired work ability [None]
  - Suicidal ideation [None]

NARRATIVE: CASE EVENT DATE: 20241202
